FAERS Safety Report 8269134-8 (Version None)
Quarter: 2012Q1

REPORT INFORMATION
  Report Type: 
  Country: None (occurrence: None)
  Receive Date: 20120327
  Receipt Date: 20091023
  Transmission Date: 20120608
  Serious: Yes (Life-Threatening, Hospitalization, Other)
  Sender: FDA-Public Use
  Company Number: PHEH2009US06151

PATIENT
  Age: 80 Year
  Sex: Female
  Weight: 94 kg

DRUGS (2)
  1. COUMADIN [Suspect]
  2. GLEEVEC [Suspect]
     Dosage: 400 MG, UNK

REACTIONS (4)
  - GASTROINTESTINAL HAEMORRHAGE [None]
  - URINARY TRACT INFECTION [None]
  - ANAEMIA [None]
  - CARDIAC FAILURE CONGESTIVE [None]
